FAERS Safety Report 8843632 (Version 2)
Quarter: 2014Q3

REPORT INFORMATION
  Report Type: Report from Study
  Country: US (occurrence: US)
  Receive Date: 20121016
  Receipt Date: 20140908
  Transmission Date: 20150326
  Serious: Yes (Hospitalization, Other)
  Sender: FDA-Public Use
  Company Number: US-ROCHE-1143129

PATIENT
  Sex: Female
  Weight: 25.3 kg

DRUGS (12)
  1. ACYCLOVIR. [Concomitant]
     Active Substance: ACYCLOVIR
  2. SODIUM BICARBONATE. [Concomitant]
     Active Substance: SODIUM BICARBONATE
  3. PREDNISONE. [Concomitant]
     Active Substance: PREDNISONE
  4. CALCIUM CARBONATE. [Concomitant]
     Active Substance: CALCIUM CARBONATE
  5. NUTROPIN AQ [Suspect]
     Active Substance: SOMATROPIN
     Indication: BODY HEIGHT BELOW NORMAL
     Dosage: 0.25 ML PER INJECTION.
     Route: 058
  6. NORVASC [Concomitant]
     Active Substance: AMLODIPINE BESYLATE
  7. KAOPECTATE (UNK INGREDIENTS) [Concomitant]
  8. AMITRIPTYLINE [Concomitant]
     Active Substance: AMITRIPTYLINE
     Route: 065
  9. PROGRAF [Concomitant]
     Active Substance: TACROLIMUS\TACROLIMUS ANHYDROUS
  10. PEDIASURE [Concomitant]
     Active Substance: VITAMINS
  11. CELLCEPT [Suspect]
     Active Substance: MYCOPHENOLATE MOFETIL\MYCOPHENOLATE MOFETIL HYDROCHLORIDE
     Indication: PRODUCT USED FOR UNKNOWN INDICATION
     Route: 065
  12. PEN VK [Concomitant]
     Active Substance: PENICILLIN V POTASSIUM

REACTIONS (2)
  - Immune system disorder [Unknown]
  - Liver transplant rejection [Unknown]
